FAERS Safety Report 15411593 (Version 2)
Quarter: 2018Q3

REPORT INFORMATION
  Report Type: Spontaneous
  Country: US (occurrence: US)
  Receive Date: 20180921
  Receipt Date: 20180926
  Transmission Date: 20181010
  Serious: Yes (Other)
  Sender: FDA-Public Use
  Company Number: US-ROCHE-2188019

PATIENT
  Age: 84 Year
  Sex: Male

DRUGS (3)
  1. LUCENTIS [Suspect]
     Active Substance: RANIBIZUMAB
     Dosage: 0.5 MG IN LEFT EYE ;ONGOING: YES
     Route: 050
     Dates: start: 20140813
  2. LUCENTIS [Suspect]
     Active Substance: RANIBIZUMAB
     Indication: NEOVASCULAR AGE-RELATED MACULAR DEGENERATION
     Dosage: 0.5 MG IN LEFT EYE ;ONGOING: YES
     Route: 050
     Dates: start: 20180906
  3. LUCENTIS [Suspect]
     Active Substance: RANIBIZUMAB
     Dosage: 0.5 MG IN RIGHT EYE ;ONGOING: YES
     Route: 050
     Dates: start: 20060928

REACTIONS (2)
  - Product quality issue [Unknown]
  - Non-infectious endophthalmitis [Not Recovered/Not Resolved]

NARRATIVE: CASE EVENT DATE: 20180915
